FAERS Safety Report 17044083 (Version 1)
Quarter: 2019Q4

REPORT INFORMATION
  Report Type: Spontaneous
  Country: US (occurrence: US)
  Receive Date: 20191118
  Receipt Date: 20191118
  Transmission Date: 20200122
  Serious: Yes (Other)
  Sender: FDA-Public Use
  Company Number: US-PFIZER INC-2019491933

PATIENT
  Age: 74 Year
  Sex: Female
  Weight: 56.7 kg

DRUGS (1)
  1. CELECOXIB. [Suspect]
     Active Substance: CELECOXIB
     Indication: BURSITIS
     Dosage: UNK

REACTIONS (2)
  - Ulcer haemorrhage [Unknown]
  - Drug ineffective [Unknown]
